FAERS Safety Report 5016722-8 (Version None)
Quarter: 2006Q2

REPORT INFORMATION
  Report Type: 
  Country: None (occurrence: None)
  Receive Date: 20060602
  Receipt Date: 20050316
  Transmission Date: 20061013
  Serious: No
  Sender: FDA-Public Use
  Company Number: US-GLAXOSMITHKLINE-A0550066A

PATIENT
  Age: 16 Month
  Sex: Male

DRUGS (2)
  1. AUGMENTIN '125' [Suspect]
     Indication: EAR INFECTION
     Dosage: .5TBS TWICE PER DAY
     Route: 048
     Dates: start: 20050309
  2. EYE DROPS [Concomitant]

REACTIONS (1)
  - DRUG ADMINISTRATION ERROR [None]
